FAERS Safety Report 9961610 (Version 2)
Quarter: 2014Q1

REPORT INFORMATION
  Report Type: Report from Study
  Country: US (occurrence: US)
  Receive Date: 20140305
  Receipt Date: 20140305
  Transmission Date: 20141002
  Serious: No
  Sender: FDA-Public Use
  Company Number: US-ABBVIE-13P-163-1106769-00

PATIENT
  Age: 67 Year
  Sex: Female

DRUGS (16)
  1. HUMIRA [Suspect]
     Indication: RHEUMATOID ARTHRITIS
     Route: 058
     Dates: start: 20130607
  2. TRANXENE-T [Concomitant]
     Indication: ANXIETY
  3. CENESTIN [Concomitant]
     Indication: HORMONE REPLACEMENT THERAPY
  4. DOXYCYCLINE [Concomitant]
     Indication: PSORIASIS
     Dosage: DAILY
  5. DOXYCYCLINE [Concomitant]
     Indication: ECZEMA
  6. DOXYCYCLINE [Concomitant]
     Indication: SEBORRHOEIC DERMATITIS
  7. DOCQLACE [Concomitant]
     Indication: GASTROOESOPHAGEAL REFLUX DISEASE
  8. RANITIDINE [Concomitant]
     Indication: GASTROOESOPHAGEAL REFLUX DISEASE
  9. RESTASIS [Concomitant]
     Indication: DRY EYE
  10. LOVAZA [Concomitant]
     Indication: PRODUCT USED FOR UNKNOWN INDICATION
  11. IBUPROFEN [Concomitant]
     Indication: PRODUCT USED FOR UNKNOWN INDICATION
  12. OMEPRAZOLE [Concomitant]
     Indication: PRODUCT USED FOR UNKNOWN INDICATION
  13. CIPRO [Concomitant]
     Indication: PRODUCT USED FOR UNKNOWN INDICATION
  14. PREDNISONE [Concomitant]
     Indication: PRODUCT USED FOR UNKNOWN INDICATION
  15. LORATADINE [Concomitant]
     Indication: PRODUCT USED FOR UNKNOWN INDICATION
  16. TIZANIDINE [Concomitant]
     Indication: PRODUCT USED FOR UNKNOWN INDICATION

REACTIONS (6)
  - Asthenia [Not Recovered/Not Resolved]
  - Dizziness [Recovered/Resolved]
  - Feeling abnormal [Recovered/Resolved]
  - Nervousness [Recovered/Resolved]
  - Injection site pain [Recovered/Resolved]
  - Injection site bruising [Recovered/Resolved]
